FAERS Safety Report 12417620 (Version 1)
Quarter: 2016Q2

REPORT INFORMATION
  Report Type: Spontaneous
  Country: US (occurrence: US)
  Receive Date: 20160530
  Receipt Date: 20160530
  Transmission Date: 20160815
  Serious: Yes (Other)
  Sender: FDA-Public Use
  Company Number: PHHY2016US072368

PATIENT
  Sex: Male

DRUGS (2)
  1. ZOMETA [Suspect]
     Active Substance: ZOLEDRONIC ACID
     Indication: PLASMA CELL MYELOMA
     Dosage: ONCE/SINGLE (BEFORE TRANSPLANT)
     Route: 041
  2. ZOMETA [Suspect]
     Active Substance: ZOLEDRONIC ACID
     Dosage: UNK, QMO
     Route: 041

REACTIONS (3)
  - Osteonecrosis of jaw [Recovered/Resolved]
  - Stomatitis [Recovered/Resolved]
  - Exposed bone in jaw [Recovered/Resolved]
